FAERS Safety Report 13802232 (Version 8)
Quarter: 2019Q2

REPORT INFORMATION
  Report Type: Spontaneous
  Country: US (occurrence: US)
  Receive Date: 20170727
  Receipt Date: 20190627
  Transmission Date: 20190711
  Serious: Yes (Hospitalization, Other)
  Sender: FDA-Public Use
  Company Number: US-ACTELION-A-NJ2017-157241

PATIENT
  Age: 79 Year
  Sex: Male

DRUGS (36)
  1. OPSUMIT [Suspect]
     Active Substance: MACITENTAN
     Indication: PULMONARY ARTERIAL HYPERTENSION
     Dosage: 10 MG, QD
     Route: 048
     Dates: start: 20161228
  2. OXYGEN. [Concomitant]
     Active Substance: OXYGEN
  3. FOSAMAX [Concomitant]
     Active Substance: ALENDRONATE SODIUM
  4. ALENDRONATE [Concomitant]
     Active Substance: ALENDRONATE SODIUM
  5. VELETRI [Concomitant]
     Active Substance: EPOPROSTENOL
     Indication: PULMONARY ARTERIAL HYPERTENSION
  6. ACETAMINOPHEN. [Concomitant]
     Active Substance: ACETAMINOPHEN
     Dosage: UNK
  7. DOCUSATE [Concomitant]
     Active Substance: DOCUSATE
  8. CHOLECALCIFEROL [Concomitant]
     Active Substance: CHOLECALCIFEROL
     Dosage: UNK
     Dates: start: 20190611
  9. FERROUS SULFATE. [Concomitant]
     Active Substance: FERROUS SULFATE
     Dosage: UNK
     Dates: start: 20190611
  10. FUROSEMIDE. [Concomitant]
     Active Substance: FUROSEMIDE
  11. MAGNESIUM CITRATE. [Concomitant]
     Active Substance: MAGNESIUM CITRATE
  12. NARCAN [Concomitant]
     Active Substance: NALOXONE HYDROCHLORIDE
  13. SILDENAFIL. [Concomitant]
     Active Substance: SILDENAFIL
  14. BISACODYL. [Concomitant]
     Active Substance: BISACODYL
     Dosage: UNK
  15. TAMSULOSIN [Concomitant]
     Active Substance: TAMSULOSIN
     Dosage: UNK
     Dates: start: 20190611
  16. DIGOXIN. [Concomitant]
     Active Substance: DIGOXIN
     Dosage: UNK
  17. DILAUDID [Concomitant]
     Active Substance: HYDROMORPHONE HYDROCHLORIDE
  18. MIDODRINE [Concomitant]
     Active Substance: MIDODRINE
  19. LIDOCAINE. [Concomitant]
     Active Substance: LIDOCAINE
  20. CEFAZOLIN [Concomitant]
     Active Substance: CEFAZOLIN
  21. PANTOPRAZOLE [Concomitant]
     Active Substance: PANTOPRAZOLE
     Dosage: UNK
     Dates: start: 20190611
  22. GABAPENTIN. [Concomitant]
     Active Substance: GABAPENTIN
  23. REGLAN [Concomitant]
     Active Substance: METOCLOPRAMIDE HYDROCHLORIDE
  24. ZOCOR [Concomitant]
     Active Substance: SIMVASTATIN
  25. ZOFRAN [Concomitant]
     Active Substance: ONDANSETRON HYDROCHLORIDE
  26. MAGNESIUM HYDROXIDE. [Concomitant]
     Active Substance: MAGNESIUM HYDROXIDE
  27. NOREPINEPHRINE. [Concomitant]
     Active Substance: NOREPINEPHRINE
  28. MIRALAX [Concomitant]
     Active Substance: POLYETHYLENE GLYCOL 3350
     Dosage: UNK
     Dates: start: 20190611
  29. TREPROSTINIL. [Concomitant]
     Active Substance: TREPROSTINIL
     Dosage: UNK
     Dates: start: 20190611
  30. NORCO [Concomitant]
     Active Substance: ACETAMINOPHEN\HYDROCODONE BITARTRATE
  31. SENOKOT [Concomitant]
     Active Substance: SENNOSIDES
  32. CALCIUM CHLORIDE. [Concomitant]
     Active Substance: CALCIUM CHLORIDE
  33. CHLORHEXIDINE [Concomitant]
     Active Substance: CHLORHEXIDINE
  34. ENOXAPARIN [Concomitant]
     Active Substance: ENOXAPARIN
  35. VANCOMYCIN [Concomitant]
     Active Substance: VANCOMYCIN
  36. ATORVASTATIN [Concomitant]
     Active Substance: ATORVASTATIN
     Dosage: UNK
     Dates: start: 20190611

REACTIONS (13)
  - Wound dehiscence [Unknown]
  - Hypotension [Recovered/Resolved]
  - Arthralgia [Not Recovered/Not Resolved]
  - Cardiac failure congestive [Not Recovered/Not Resolved]
  - Failure to thrive [Not Recovered/Not Resolved]
  - Nephrolithiasis [Recovered/Resolved]
  - Respiratory failure [Not Recovered/Not Resolved]
  - Infection [Recovered/Resolved]
  - Spinal fusion surgery [Recovered/Resolved with Sequelae]
  - Product dose omission [Unknown]
  - Septic shock [Recovered/Resolved]
  - Postoperative wound complication [Unknown]
  - Oesophageal achalasia [Unknown]

NARRATIVE: CASE EVENT DATE: 20170627
